FAERS Safety Report 10786970 (Version 2)
Quarter: 2015Q2

REPORT INFORMATION
  Report Type: Spontaneous
  Country: US (occurrence: US)
  Receive Date: 20150211
  Receipt Date: 20150504
  Transmission Date: 20150821
  Serious: Yes (Other)
  Sender: FDA-Public Use
  Company Number: US-GLAXOSMITHKLINE-US2014GSK050149

PATIENT
  Sex: Male

DRUGS (1)
  1. MEKINIST [Suspect]
     Active Substance: TRAMETINIB DIMETHYL SULFOXIDE
     Indication: NEOPLASM MALIGNANT
     Dosage: UNK
     Dates: start: 20141121

REACTIONS (5)
  - Gait disturbance [Unknown]
  - Disorientation [Unknown]
  - Rectal haemorrhage [Unknown]
  - Fall [Unknown]
  - Balance disorder [Unknown]
